FAERS Safety Report 8020995 (Version 6)
Quarter: 2013Q4

REPORT INFORMATION
  Report Type: Spontaneous
  Country: US (occurrence: US)
  Receive Date: 20110705
  Receipt Date: 20131226
  Transmission Date: 20140711
  Serious: Yes (Hospitalization, Other)
  Sender: FDA-Public Use
  Company Number: US-BAYER-2011-056933

PATIENT
  Age: 39 Year
  Sex: Female
  Weight: 54 kg

DRUGS (5)
  1. YAZ [Suspect]
     Indication: CONTRACEPTION
     Dosage: 1 DF, QD
     Dates: start: 200809, end: 201003
  2. PREDNISONE [Concomitant]
     Indication: URTICARIA
     Dosage: 10 MG, UNK
  3. ADVIL [Concomitant]
  4. PERCOCET [Concomitant]
  5. ACETAMINOPHEN W/OXYCODONE [Concomitant]
     Dosage: UNK
     Route: 048
     Dates: start: 20090225

REACTIONS (4)
  - Cholecystitis chronic [None]
  - Cholelithiasis [None]
  - Cholelithiasis [None]
  - Procedural pain [Recovered/Resolved]
